FAERS Safety Report 24561665 (Version 2)
Quarter: 2025Q1

REPORT INFORMATION
  Report Type: Spontaneous
  Country: HR (occurrence: None)
  Receive Date: 20241029
  Receipt Date: 20250328
  Transmission Date: 20250408
  Serious: Yes (Other)
  Sender: INCYTE
  Company Number: HR-002147023-NVSC2024HR208658

PATIENT

DRUGS (1)
  1. RUXOLITINIB [Suspect]
     Active Substance: RUXOLITINIB
     Indication: Myelofibrosis
     Dosage: 20 MG, BID (FOR 2-3 YEARS)
     Route: 065

REACTIONS (3)
  - Rectal cancer [Unknown]
  - Adenocarcinoma of colon [Unknown]
  - Adenoma benign [Unknown]
